FAERS Safety Report 8239477-2 (Version None)
Quarter: 2012Q1

REPORT INFORMATION
  Report Type: 
  Country: None (occurrence: None)
  Receive Date: 20120328
  Receipt Date: 20120321
  Transmission Date: 20120608
  Serious: No
  Sender: FDA-Public Use
  Company Number: US-PFIZER INC-2012018004

PATIENT
  Age: 37 Year
  Sex: Female

DRUGS (3)
  1. REVATIO [Suspect]
     Dosage: UNK
  2. LETAIRIS [Suspect]
     Dosage: 10 MG, UNK
     Route: 048
     Dates: start: 20090313
  3. FLOLAN [Concomitant]
     Dosage: UNK

REACTIONS (7)
  - FLUSHING [None]
  - CHILLS [None]
  - PALPITATIONS [None]
  - NAUSEA [None]
  - MALAISE [None]
  - VOMITING [None]
  - FEELING JITTERY [None]
